FAERS Safety Report 7698716-7 (Version None)
Quarter: 2011Q3

REPORT INFORMATION
  Report Type: 
  Country: None (occurrence: None)
  Receive Date: 20110819
  Receipt Date: 20110812
  Transmission Date: 20111222
  Serious: Yes (Hospitalization, Other)
  Sender: FDA-Public Use
  Company Number: JP-ABBOTT-11P-087-0706779-00

PATIENT
  Sex: Male
  Weight: 63.2 kg

DRUGS (13)
  1. VITAMIN B COMPLEX CAP [Concomitant]
     Indication: NEUROPATHY PERIPHERAL
     Route: 048
  2. AROTINOLOL HYDROCHLORIDE [Concomitant]
     Indication: HYPERTENSION
     Route: 048
  3. TACROLIMUS [Concomitant]
     Indication: RHEUMATOID ARTHRITIS
     Route: 048
     Dates: start: 20091109, end: 20110222
  4. LANSOPRAZOLE [Concomitant]
     Indication: GASTROOESOPHAGEAL REFLUX DISEASE
     Route: 048
  5. CANDESARTAN CILEXETIL [Concomitant]
     Indication: HYPERTENSION
     Route: 048
  6. FUROSEMIDE [Concomitant]
     Indication: OEDEMA
     Route: 048
  7. AMLODIPINE BESYLATE [Concomitant]
     Indication: HYPERTENSION
     Route: 048
  8. ALFACALCIDOL [Concomitant]
     Indication: RENAL OSTEODYSTROPHY
     Route: 048
  9. CHLORPHENIRAMINE MALEATE [Concomitant]
     Indication: PRURITUS
     Route: 048
  10. HUMIRA [Suspect]
     Indication: RHEUMATOID ARTHRITIS
     Route: 058
     Dates: start: 20100902, end: 20110202
  11. DOXAZOSIN MESYLATE [Concomitant]
     Indication: HYPERTENSION
     Route: 048
  12. NIFEDIPINE [Concomitant]
     Indication: HYPERTENSION
     Route: 048
  13. CLONIDINE HYDROCHLORIDE [Concomitant]
     Indication: HYPERTENSION
     Route: 048

REACTIONS (11)
  - PYREXIA [None]
  - ATRIAL FIBRILLATION [None]
  - CARDIOMEGALY [None]
  - PERICARDITIS [None]
  - PERICARDIAL EFFUSION [None]
  - MALAISE [None]
  - ANTINUCLEAR ANTIBODY INCREASED [None]
  - BRONCHITIS [None]
  - INFECTION [None]
  - HYPOCOMPLEMENTAEMIA [None]
  - DNA ANTIBODY POSITIVE [None]
